FAERS Safety Report 9851242 (Version 1)
Quarter: 2014Q1

REPORT INFORMATION
  Report Type: Report from Study
  Country: US (occurrence: US)
  Receive Date: 20140128
  Receipt Date: 20140128
  Transmission Date: 20141002
  Serious: Yes (Death, Life-Threatening, Hospitalization, Other)
  Sender: FDA-Public Use
  Company Number: US-ABBVIE-14P-163-1194102-00

PATIENT
  Age: 70 Year
  Sex: Male
  Weight: 78.09 kg

DRUGS (11)
  1. LUPRON DEPOT [Suspect]
     Indication: PROSTATE CANCER
     Route: 030
     Dates: start: 201012, end: 201310
  2. METOPROLOL [Concomitant]
     Indication: HYPERTENSION
  3. BENICAR [Concomitant]
     Indication: HYPERTENSION
  4. NIFEDIPINE [Concomitant]
     Indication: HYPERTENSION
  5. CLONIDINE [Concomitant]
     Indication: HYPERTENSION
  6. PLAVIX [Concomitant]
     Indication: PRODUCT USED FOR UNKNOWN INDICATION
  7. PRAVASTATIN [Concomitant]
     Indication: BLOOD CHOLESTEROL INCREASED
  8. JANUVIA [Concomitant]
     Indication: DIABETES MELLITUS
  9. GLIPIZIDE [Concomitant]
     Indication: DIABETES MELLITUS
  10. BICALUTAMIDE [Concomitant]
     Indication: PROSTATE CANCER
  11. ASPIRIN [Concomitant]
     Indication: PRODUCT USED FOR UNKNOWN INDICATION

REACTIONS (10)
  - Malaise [Recovered/Resolved]
  - Loss of consciousness [Recovered/Resolved]
  - Arteriosclerosis coronary artery [Fatal]
  - Coronary artery disease [Fatal]
  - Vomiting [Recovered/Resolved]
  - Sepsis [Unknown]
  - Cardiac arrest [Recovered/Resolved]
  - Cardiac arrest [Fatal]
  - Arrhythmia [Fatal]
  - Myocardial infarction [Fatal]
